FAERS Safety Report 17760719 (Version 1)
Quarter: 2020Q2

REPORT INFORMATION
  Report Type: Spontaneous
  Country: IT (occurrence: IT)
  Receive Date: 20200508
  Receipt Date: 20200508
  Transmission Date: 20200714
  Serious: Yes (Other)
  Sender: FDA-Public Use
  Company Number: IT-MYLANLABS-2020M1044934

PATIENT
  Age: 7 Year
  Sex: Female

DRUGS (3)
  1. IMATINIB. [Suspect]
     Active Substance: IMATINIB MESYLATE
     Indication: CHRONIC MYELOID LEUKAEMIA
     Dosage: 340 MG/M2, QD CONTINOUS
  2. IMATINIB. [Suspect]
     Active Substance: IMATINIB MESYLATE
     Dosage: 340 MG/M2, QD CONTINOUS
  3. IMATINIB. [Suspect]
     Active Substance: IMATINIB MESYLATE
     Dosage: 340 MG/M2, QD (FOR 3 WEEKS A MONTH)

REACTIONS (5)
  - Bone metabolism disorder [Unknown]
  - Treatment failure [Recovering/Resolving]
  - Chronic myeloid leukaemia [Recovering/Resolving]
  - Pubertal failure [Unknown]
  - Growth retardation [Unknown]
